FAERS Safety Report 25131029 (Version 1)
Quarter: 2025Q1

REPORT INFORMATION
  Report Type: Spontaneous
  Country: TR (occurrence: TR)
  Receive Date: 20250327
  Receipt Date: 20250327
  Transmission Date: 20250409
  Serious: Yes (Hospitalization, Other)
  Sender: CIVICA
  Company Number: TR-CIVICARX-2025-TR-000015

PATIENT
  Age: 64 Year
  Sex: Male

DRUGS (1)
  1. BUPIVACAINE HYDROCHLORIDE [Suspect]
     Active Substance: BUPIVACAINE HYDROCHLORIDE
     Indication: Local anaesthesia
     Route: 058

REACTIONS (1)
  - Kounis syndrome [Recovered/Resolved]
